FAERS Safety Report 22071513 (Version 5)
Quarter: 2023Q2

REPORT INFORMATION
  Report Type: Spontaneous
  Country: GB (occurrence: GB)
  Receive Date: 20230307
  Receipt Date: 20230612
  Transmission Date: 20230721
  Serious: Yes (Hospitalization, Other)
  Sender: FDA-Public Use
  Company Number: GB-MYLANLABS-2023M1021484

PATIENT
  Sex: Female

DRUGS (1)
  1. CLOZARIL [Suspect]
     Active Substance: CLOZAPINE
     Indication: Schizophrenia
     Dosage: UNK
     Route: 048
     Dates: start: 20140618, end: 20230512

REACTIONS (4)
  - Seizure [Not Recovered/Not Resolved]
  - General physical condition abnormal [Unknown]
  - Hospitalisation [Unknown]
  - Epilepsy [Unknown]
